FAERS Safety Report 17851226 (Version 1)
Quarter: 2020Q2

REPORT INFORMATION
  Report Type: Spontaneous
  Country: US (occurrence: US)
  Receive Date: 20200602
  Receipt Date: 20200602
  Transmission Date: 20200714
  Serious: No
  Sender: FDA-Public Use
  Company Number: US-FOUNDATIONCONSUMERHC-2019-US-022626

PATIENT
  Age: 19 Year
  Sex: Female
  Weight: 74.84 kg

DRUGS (3)
  1. IRON SUPPLEMENT [Concomitant]
     Active Substance: IRON
  2. AZO URINARY TRACT DEFENSE [Concomitant]
  3. PLAN B ONE-STEP [Suspect]
     Active Substance: LEVONORGESTREL
     Indication: POST COITAL CONTRACEPTION
     Dosage: 1.5 MG X 2 DOSES
     Route: 048
     Dates: start: 201905, end: 20191116

REACTIONS (2)
  - Menstruation irregular [Recovered/Resolved]
  - Vaginal haemorrhage [Not Recovered/Not Resolved]

NARRATIVE: CASE EVENT DATE: 201905
